APPROVED DRUG PRODUCT: OXYCODONE HYDROCHLORIDE
Active Ingredient: OXYCODONE HYDROCHLORIDE
Strength: 15MG
Dosage Form/Route: TABLET;ORAL
Application: A076758 | Product #001 | TE Code: AB
Applicant: SPECGX LLC
Approved: Jun 30, 2004 | RLD: No | RS: No | Type: RX